FAERS Safety Report 8994853 (Version 4)
Quarter: 2013Q1

REPORT INFORMATION
  Report Type: Report from Study
  Country: ZW (occurrence: ZW)
  Receive Date: 20130102
  Receipt Date: 20130121
  Transmission Date: 20140127
  Serious: Yes (Death, Hospitalization)
  Sender: FDA-Public Use
  Company Number: ZW-GILEAD-2012-0066900

PATIENT
  Age: 53 Year
  Sex: Male

DRUGS (3)
  1. EMTRICITABINE/TENOFOVIR DISOPROXIL FUMARATE [Suspect]
     Indication: HIV INFECTION
     Dosage: 300 MG, UNK
     Route: 048
     Dates: start: 20121128, end: 20121218
  2. NEVIRAPINE [Suspect]
     Indication: HIV INFECTION
     Dosage: 200 MG, UNK
     Route: 048
     Dates: start: 20121128, end: 20121212
  3. NEVIRAPINE [Suspect]
     Dosage: UNK
     Route: 048
     Dates: start: 20121212, end: 20121218

REACTIONS (2)
  - Renal failure [Fatal]
  - Rash [Not Recovered/Not Resolved]
